FAERS Safety Report 16564086 (Version 1)
Quarter: 2019Q3

REPORT INFORMATION
  Report Type: Other
  Country: DE (occurrence: DE)
  Receive Date: 20190712
  Receipt Date: 20190712
  Transmission Date: 20191004
  Serious: Yes (Other)
  Sender: FDA-Public Use
  Company Number: DE-STRIDES ARCOLAB LIMITED-2019SP005964

PATIENT
  Sex: Male

DRUGS (2)
  1. VANCOMYCIN [Suspect]
     Active Substance: VANCOMYCIN
     Indication: CLOSTRIDIUM DIFFICILE INFECTION
     Dosage: 500MG DAILY, HARD CAPSULE
     Route: 048
     Dates: start: 20190521
  2. VANCOMYCIN [Suspect]
     Active Substance: VANCOMYCIN
     Dosage: 4 X 125 MG EVERY THIRD DAY
     Route: 048
     Dates: start: 20190606

REACTIONS (1)
  - Rheumatoid arthritis [Not Recovered/Not Resolved]
